FAERS Safety Report 24462821 (Version 2)
Quarter: 2024Q4

REPORT INFORMATION
  Report Type: Spontaneous
  Country: CA (occurrence: CA)
  Receive Date: 20241018
  Receipt Date: 20241120
  Transmission Date: 20250114
  Serious: No
  Sender: BECTON DICKINSON
  Company Number: CA-BECTON DICKINSON-CA-BD-24-000584

PATIENT

DRUGS (1)
  1. CHLORAPREP WITH TINT [Suspect]
     Active Substance: CHLORHEXIDINE GLUCONATE\ISOPROPYL ALCOHOL
     Indication: Product used for unknown indication
     Dosage: N/A
     Route: 065

REACTIONS (1)
  - Product barcode issue [Unknown]

NARRATIVE: CASE EVENT DATE: 20240930
